FAERS Safety Report 8423755-8 (Version None)
Quarter: 2012Q2

REPORT INFORMATION
  Report Type: 
  Country: None (occurrence: None)
  Receive Date: 20120608
  Receipt Date: 20111122
  Transmission Date: 20120825
  Serious: No
  Sender: FDA-Public Use
  Company Number: US-ASTRAZENECA-2011SE71100

PATIENT
  Age: 99 Year
  Sex: Female

DRUGS (8)
  1. ATACAND [Suspect]
     Indication: HYPERTENSION
     Dosage: 16 MG EVERY MORNING AND 16 MG AT NIGHT
     Route: 048
     Dates: start: 19940101
  2. FUROSEMIDE [Concomitant]
  3. ATACAND [Suspect]
     Dosage: 16 MG, TWICE A DAY
     Route: 048
  4. ATACAND [Suspect]
     Dosage: 16 MG, THREE TIMES A DAY
     Route: 048
     Dates: start: 20111001
  5. TOPROL-XL [Concomitant]
  6. ATACAND [Suspect]
     Dosage: 16 MG, THREE TIMES A DAY
     Route: 048
  7. XALATAN [Concomitant]
     Indication: GLAUCOMA
  8. NORVASC [Concomitant]

REACTIONS (3)
  - HYPERTENSION [None]
  - DRUG INEFFECTIVE [None]
  - DRUG PRESCRIBING ERROR [None]
